FAERS Safety Report 18932899 (Version 2)
Quarter: 2021Q2

REPORT INFORMATION
  Report Type: Not Available
  Country: None (occurrence: None)
  Receive Date: 20210224
  Receipt Date: 20210406
  Transmission Date: 20210717
  Serious: Yes (Other)
  Sender: FDA-Public Use
  Company Number: US-AKORN-161561

PATIENT
  Age: 14 Year
  Sex: Female

DRUGS (1)
  1. MYORISAN [Suspect]
     Active Substance: ISOTRETINOIN

REACTIONS (5)
  - Malaise [Not Recovered/Not Resolved]
  - Off label use [Recovered/Resolved]
  - Eating disorder [Not Recovered/Not Resolved]
  - Exposure during pregnancy [Not Recovered/Not Resolved]
  - Vomiting [Not Recovered/Not Resolved]
